FAERS Safety Report 24654343 (Version 2)
Quarter: 2024Q4

REPORT INFORMATION
  Report Type: Other
  Country: FR (occurrence: FR)
  Receive Date: 20241122
  Receipt Date: 20241230
  Transmission Date: 20250115
  Serious: Yes (Other)
  Sender: INCYTE
  Company Number: FR-CHEPLA-2024013339

PATIENT

DRUGS (10)
  1. RUXOLITINIB [Suspect]
     Active Substance: RUXOLITINIB
     Indication: Polycythaemia vera
     Dosage: UNK
     Route: 065
  2. RUXOLITINIB [Suspect]
     Active Substance: RUXOLITINIB
     Dosage: 10 MG (2 TIMES/DAY)
     Route: 065
     Dates: start: 202001, end: 202212
  3. HYDROXYUREA [Suspect]
     Active Substance: HYDROXYUREA
     Indication: Polycythaemia vera
     Dosage: UNK
     Route: 065
  4. HYDROXYUREA [Suspect]
     Active Substance: HYDROXYUREA
     Dosage: 8 DOSAGE FORM, QW
     Route: 048
     Dates: start: 2011, end: 2019
  5. HYDROXYUREA [Suspect]
     Active Substance: HYDROXYUREA
     Dosage: 8 DOSAGE FORM, QW
     Route: 048
     Dates: start: 202308, end: 20230903
  6. PROPRANOLOL [Suspect]
     Active Substance: PROPRANOLOL HYDROCHLORIDE
     Indication: Portal vein thrombosis
     Dosage: UNK (1-0-0-5)
     Route: 048
     Dates: start: 2011
  7. PEGASYS [Suspect]
     Active Substance: PEGINTERFERON ALFA-2A
     Indication: Polycythaemia vera
     Dosage: 45 UG, QW
     Route: 065
     Dates: start: 20230829, end: 20231219
  8. PEGASYS [Suspect]
     Active Substance: PEGINTERFERON ALFA-2A
     Dosage: 45 UG (15 DAYS)
     Route: 065
     Dates: start: 20231219, end: 202407
  9. PEGASYS [Suspect]
     Active Substance: PEGINTERFERON ALFA-2A
     Dosage: 90 UG (15 DAYS)
     Route: 065
     Dates: start: 202409
  10. FLUINDIONE [Suspect]
     Active Substance: FLUINDIONE
     Indication: Portal vein thrombosis
     Dosage: UNK
     Route: 048
     Dates: start: 2011

REACTIONS (8)
  - Basal cell carcinoma [Unknown]
  - Haemoglobin decreased [Unknown]
  - Diarrhoea [Unknown]
  - Anaemia [Unknown]
  - Squamous cell carcinoma [Unknown]
  - Multiple-drug resistance [Unknown]
  - Off label use [Unknown]
  - Actinic keratosis [Unknown]

NARRATIVE: CASE EVENT DATE: 20190101
